FAERS Safety Report 17360997 (Version 2)
Quarter: 2020Q3

REPORT INFORMATION
  Report Type: Spontaneous
  Country: US (occurrence: US)
  Receive Date: 20200203
  Receipt Date: 20200923
  Transmission Date: 20201102
  Serious: Yes (Other)
  Sender: FDA-Public Use
  Company Number: US-GILEAD-2020-0448773

PATIENT
  Age: 27 Year
  Sex: Female
  Weight: 68.04 kg

DRUGS (58)
  1. CARVEDILOL. [Concomitant]
     Active Substance: CARVEDILOL
  2. ELIQUIS [Concomitant]
     Active Substance: APIXABAN
  3. COLACE [Concomitant]
     Active Substance: DOCUSATE SODIUM
  4. CLINDAMYCIN. [Concomitant]
     Active Substance: CLINDAMYCIN
  5. METRONIDAZOLE. [Concomitant]
     Active Substance: METRONIDAZOLE
  6. TRUVADA [Suspect]
     Active Substance: EMTRICITABINE\TENOFOVIR DISOPROXIL FUMARATE
     Dosage: UNK
     Route: 048
     Dates: start: 20101008, end: 20110210
  7. EMTRIVA [Concomitant]
     Active Substance: EMTRICITABINE
  8. ZIAGEN [Concomitant]
     Active Substance: ABACAVIR SULFATE
  9. ADALAT CC [Concomitant]
     Active Substance: NIFEDIPINE
  10. PREVACID [Concomitant]
     Active Substance: LANSOPRAZOLE
  11. TRUVADA [Suspect]
     Active Substance: EMTRICITABINE\TENOFOVIR DISOPROXIL FUMARATE
     Dosage: UNK
     Route: 048
     Dates: start: 20110517, end: 20120127
  12. VIREAD [Suspect]
     Active Substance: TENOFOVIR DISOPROXIL FUMARATE
     Dosage: UNK
     Route: 065
     Dates: start: 20180917, end: 20190917
  13. NORVIR [Concomitant]
     Active Substance: RITONAVIR
  14. CLONIDINE. [Concomitant]
     Active Substance: CLONIDINE
  15. DRISDOL [Concomitant]
     Active Substance: ERGOCALCIFEROL
  16. GUAIFENESIN. [Concomitant]
     Active Substance: GUAIFENESIN
  17. NITROGLYCERIN. [Concomitant]
     Active Substance: NITROGLYCERIN
  18. VALTREX [Concomitant]
     Active Substance: VALACYCLOVIR HYDROCHLORIDE
  19. ATORVASTATIN [Concomitant]
     Active Substance: ATORVASTATIN
  20. ATOVAQUONE. [Concomitant]
     Active Substance: ATOVAQUONE
  21. ATRIPLA [Suspect]
     Active Substance: EFAVIRENZ\EMTRICITABINE\TENOFOVIR DISOPROXIL FUMARATE
     Indication: HIV INFECTION
     Dosage: UNK
     Route: 065
     Dates: start: 20100329, end: 20110210
  22. SUSTIVA [Concomitant]
     Active Substance: EFAVIRENZ
  23. TIVICAY [Concomitant]
     Active Substance: DOLUTEGRAVIR SODIUM
  24. AMLODIPINE [Concomitant]
     Active Substance: AMLODIPINE BESYLATE
  25. APIXABAN [Concomitant]
     Active Substance: APIXABAN
  26. FLAGYL [Concomitant]
     Active Substance: METRONIDAZOLE\METRONIDAZOLE HYDROCHLORIDE
  27. CALCIUM CARBONATE. [Concomitant]
     Active Substance: CALCIUM CARBONATE
  28. AMOXICILLIN. [Concomitant]
     Active Substance: AMOXICILLIN
  29. COREG [Concomitant]
     Active Substance: CARVEDILOL
  30. ROMYCIN [AZITHROMYCIN] [Concomitant]
  31. ZITHROMAX [Concomitant]
     Active Substance: AZITHROMYCIN DIHYDRATE
  32. EPIVIR [Concomitant]
     Active Substance: LAMIVUDINE
  33. TRUVADA [Suspect]
     Active Substance: EMTRICITABINE\TENOFOVIR DISOPROXIL FUMARATE
     Indication: HIV INFECTION
     Dosage: UNK
     Route: 048
     Dates: start: 2009
  34. METHOCARBAMOL. [Concomitant]
     Active Substance: METHOCARBAMOL
  35. XANAX [Concomitant]
     Active Substance: ALPRAZOLAM
  36. PROTONIX [Concomitant]
     Active Substance: PANTOPRAZOLE SODIUM
  37. TYLENOL [Concomitant]
     Active Substance: ACETAMINOPHEN
  38. EPOETIN ALFA [Concomitant]
     Active Substance: ERYTHROPOIETIN
  39. CLARITINE [Concomitant]
     Active Substance: LORATADINE
  40. ALBUTEROL [SALBUTAMOL] [Concomitant]
     Active Substance: ALBUTEROL
  41. METOPROLOL. [Concomitant]
     Active Substance: METOPROLOL
  42. DIPHENHYDRAMINE. [Concomitant]
     Active Substance: DIPHENHYDRAMINE
  43. LIPITOR [Concomitant]
     Active Substance: ATORVASTATIN CALCIUM
  44. DOXYCYCLINE. [Concomitant]
     Active Substance: DOXYCYCLINE
  45. MEPRON [Concomitant]
     Active Substance: ATOVAQUONE
  46. NICODERM CQ [Concomitant]
     Active Substance: NICOTINE
  47. PREDNISONE. [Concomitant]
     Active Substance: PREDNISONE
  48. GABAPENTIN. [Concomitant]
     Active Substance: GABAPENTIN
  49. VIREAD [Suspect]
     Active Substance: TENOFOVIR DISOPROXIL FUMARATE
     Indication: HIV INFECTION
     Dosage: UNK
     Route: 065
     Dates: start: 20150210, end: 2016
  50. VIREAD [Suspect]
     Active Substance: TENOFOVIR DISOPROXIL FUMARATE
     Dosage: UNK
     Route: 065
     Dates: start: 20200227
  51. PREZISTA [Concomitant]
     Active Substance: DARUNAVIR ETHANOLATE
  52. REYATAZ [Concomitant]
     Active Substance: ATAZANAVIR SULFATE
  53. HEPARIN SODIUM. [Concomitant]
     Active Substance: HEPARIN SODIUM
  54. LIPITOR [Concomitant]
     Active Substance: ATORVASTATIN CALCIUM
  55. HYDRALAZINE [Concomitant]
     Active Substance: HYDRALAZINE HYDROCHLORIDE
  56. LOSARTAN. [Concomitant]
     Active Substance: LOSARTAN
  57. DIFLUCAN [Concomitant]
     Active Substance: FLUCONAZOLE
  58. LISINOPRIL. [Concomitant]
     Active Substance: LISINOPRIL

REACTIONS (16)
  - Chronic kidney disease [Unknown]
  - Renal atrophy [Unknown]
  - Crying [Not Recovered/Not Resolved]
  - Anxiety [Not Recovered/Not Resolved]
  - Thrombosis [Recovered/Resolved]
  - Emotional distress [Not Recovered/Not Resolved]
  - Economic problem [Not Recovered/Not Resolved]
  - Restlessness [Not Recovered/Not Resolved]
  - Acute kidney injury [Unknown]
  - Helplessness [Not Recovered/Not Resolved]
  - Pain [Not Recovered/Not Resolved]
  - Suicidal ideation [Not Recovered/Not Resolved]
  - End stage renal disease [Not Recovered/Not Resolved]
  - Anhedonia [Not Recovered/Not Resolved]
  - Depression [Not Recovered/Not Resolved]
  - Renal impairment [Not Recovered/Not Resolved]

NARRATIVE: CASE EVENT DATE: 2013
